FAERS Safety Report 7049596-4 (Version None)
Quarter: 2010Q4

REPORT INFORMATION
  Report Type: 
  Country: None (occurrence: None)
  Receive Date: 20101018
  Receipt Date: 20101014
  Transmission Date: 20110411
  Serious: Yes (Hospitalization, Other)
  Sender: FDA-Public Use
  Company Number: DE-BAYER-201040999GPV

PATIENT
  Age: 14 Month
  Sex: Male
  Weight: 11 kg

DRUGS (2)
  1. KOGENATE FS [Suspect]
     Indication: FACTOR VIII DEFICIENCY
     Dates: start: 20100707, end: 20100825
  2. KOGENATE FS [Suspect]
     Dates: start: 20100901, end: 20100913

REACTIONS (3)
  - FACTOR VIII INHIBITION [None]
  - FALL [None]
  - MUSCLE HAEMORRHAGE [None]
